FAERS Safety Report 8756499 (Version 2)
Quarter: 2012Q4

REPORT INFORMATION
  Report Type: Spontaneous
  Country: US (occurrence: None)
  Receive Date: 20120814
  Receipt Date: 20120822
  Transmission Date: 20130627
  Serious: Yes (Other)
  Sender: FDA-Public Use
  Company Number: 2012AP002367

PATIENT
  Age: 52 Year

DRUGS (1)
  1. CYCLOSPORINE [Suspect]
     Indication: IMMUNOSUPPRESSANT DRUG THERAPY

REACTIONS (3)
  - Posterior reversible encephalopathy syndrome [None]
  - Cerebral microhaemorrhage [None]
  - Toxicity to various agents [None]
